FAERS Safety Report 7565265-6 (Version None)
Quarter: 2011Q2

REPORT INFORMATION
  Report Type: 
  Country: None (occurrence: None)
  Receive Date: 20110622
  Receipt Date: 20110608
  Transmission Date: 20111010
  Serious: Yes (Life-Threatening)
  Sender: FDA-Public Use
  Company Number: DE-GENENTECH-320204

PATIENT
  Sex: Male
  Weight: 62.3 kg

DRUGS (17)
  1. CYCLOPHOSPHAMIDE [Suspect]
     Dosage: UNK
     Route: 042
     Dates: start: 20110607
  2. PREDNISOLONE [Suspect]
     Dosage: UNK
     Route: 048
     Dates: start: 20110607
  3. CYCLOPHOSPHAMIDE [Suspect]
     Indication: LYMPHOMA
     Dosage: UNK
     Route: 042
     Dates: start: 20110520, end: 20110603
  4. ADRIAMYCIN PFS [Suspect]
     Dosage: 90 MG, UNK
     Route: 042
     Dates: start: 20110607
  5. VINCRISTINE [Suspect]
     Indication: LYMPHOMA
     Dosage: 2 MG, UNK
     Route: 042
     Dates: start: 20110520, end: 20110603
  6. PREDNISOLONE [Suspect]
     Indication: LYMPHOMA
     Dosage: 100 MG, UNK
     Route: 048
     Dates: start: 20110520, end: 20110603
  7. URALYT [Concomitant]
     Indication: PRODUCT USED FOR UNKNOWN INDICATION
     Dosage: UNK
     Dates: start: 20110513
  8. COTRIM [Concomitant]
     Indication: PRODUCT USED FOR UNKNOWN INDICATION
     Dosage: UNK
     Dates: start: 20110514
  9. ADRIAMYCIN PFS [Suspect]
     Indication: LYMPHOMA
     Dosage: 90 MG, UNK
     Route: 042
     Dates: start: 20110520, end: 20110603
  10. VINCRISTINE [Suspect]
     Dosage: 2 MG, UNK
     Route: 042
     Dates: start: 20110607
  11. RITUXIMAB [Suspect]
     Dosage: 875 MG, UNK
     Route: 042
     Dates: start: 20110606
  12. ENOXAPARIN SODIUM [Suspect]
     Indication: PRODUCT USED FOR UNKNOWN INDICATION
     Dosage: UNK
     Route: 065
     Dates: start: 20110513, end: 20110602
  13. PANTOPRAZOLE [Concomitant]
     Indication: PRODUCT USED FOR UNKNOWN INDICATION
     Dosage: UNK
     Dates: start: 20110513
  14. ALLOPURINOL [Concomitant]
     Indication: PRODUCT USED FOR UNKNOWN INDICATION
     Dosage: UNK
     Dates: start: 20110513
  15. ACYCLOVIR [Concomitant]
     Indication: PRODUCT USED FOR UNKNOWN INDICATION
     Dosage: UNK
     Dates: start: 20110523
  16. RITUXIMAB [Suspect]
     Indication: B-CELL LYMPHOMA
     Dosage: 875 MG, UNK
     Route: 042
     Dates: start: 20110519, end: 20110602
  17. LEVOFLOXACIN [Concomitant]
     Indication: PRODUCT USED FOR UNKNOWN INDICATION
     Dosage: UNK
     Dates: start: 20110528, end: 20110531

REACTIONS (1)
  - GASTROINTESTINAL HAEMORRHAGE [None]
